FAERS Safety Report 25202889 (Version 1)
Quarter: 2025Q2

REPORT INFORMATION
  Report Type: Spontaneous
  Country: US (occurrence: US)
  Receive Date: 20250416
  Receipt Date: 20250416
  Transmission Date: 20250717
  Serious: No
  Sender: MYLAN
  Company Number: US-MYLANLABS-2025M1029826

PATIENT
  Sex: Female
  Weight: 58.97 kg

DRUGS (4)
  1. ESTRADIOL TRANSDERMAL SYSTEM [Suspect]
     Active Substance: ESTRADIOL
     Indication: Hysterectomy
     Dosage: 0.1 MILLIGRAM, QD (ONCE WEEKLY)
     Dates: start: 2019
  2. LOSARTAN [Concomitant]
     Active Substance: LOSARTAN
  3. SINGULAIR [Concomitant]
     Active Substance: MONTELUKAST SODIUM
  4. CHLORTHALIDONE [Concomitant]
     Active Substance: CHLORTHALIDONE

REACTIONS (3)
  - Nipple pain [Recovering/Resolving]
  - Hot flush [Unknown]
  - Breast enlargement [Recovering/Resolving]
